FAERS Safety Report 17104825 (Version 1)
Quarter: 2019Q4

REPORT INFORMATION
  Report Type: Spontaneous
  Country: FR (occurrence: FR)
  Receive Date: 20191203
  Receipt Date: 20191203
  Transmission Date: 20200122
  Serious: Yes (Hospitalization)
  Sender: FDA-Public Use
  Company Number: FR-UCBSA-2019050942

PATIENT
  Age: 40 Year
  Sex: Female
  Weight: 130 kg

DRUGS (2)
  1. CIMZIA [Suspect]
     Active Substance: CERTOLIZUMAB PEGOL
     Indication: PSORIATIC ARTHROPATHY
     Dosage: 200 MILLIGRAM, EV 2 WEEKS(QOW)
     Route: 042
     Dates: start: 201709
  2. PROZAC [Suspect]
     Active Substance: FLUOXETINE HYDROCHLORIDE
     Indication: DEPRESSION
     Dosage: 20 MILLIGRAM, ONCE DAILY (QD)
     Route: 048

REACTIONS (3)
  - Abortion spontaneous [Recovered/Resolved]
  - Maternal exposure before pregnancy [Unknown]
  - Off label use [Unknown]

NARRATIVE: CASE EVENT DATE: 2019
